FAERS Safety Report 12190852 (Version 1)
Quarter: 2016Q1

REPORT INFORMATION
  Report Type: Spontaneous
  Country: US (occurrence: US)
  Receive Date: 20160318
  Receipt Date: 20160318
  Transmission Date: 20160526
  Serious: Yes (Hospitalization, Other)
  Sender: FDA-Public Use
  Company Number: US-WARNER CHILCOTT, LLC-1049293

PATIENT
  Sex: Female
  Weight: 72.27 kg

DRUGS (1)
  1. LO LOESTRIN FE [Suspect]
     Active Substance: ETHINYL ESTRADIOL\NORETHINDRONE ACETATE
     Indication: PREMENSTRUAL SYNDROME
     Route: 048
     Dates: start: 2015, end: 2015

REACTIONS (4)
  - Thrombocytopenia [Not Recovered/Not Resolved]
  - Metrorrhagia [Unknown]
  - Chest pain [Recovered/Resolved]
  - Product use issue [None]

NARRATIVE: CASE EVENT DATE: 2015
